FAERS Safety Report 21186394 (Version 1)
Quarter: 2022Q3

REPORT INFORMATION
  Report Type: Spontaneous
  Country: CO (occurrence: CO)
  Receive Date: 20220808
  Receipt Date: 20220808
  Transmission Date: 20221027
  Serious: Yes (Hospitalization)
  Sender: FDA-Public Use
  Company Number: CO-BAXTER-2022BAX016383

PATIENT
  Age: 61 Year
  Sex: Male
  Weight: 66 kg

DRUGS (14)
  1. DIANEAL LOW CALCIUM WITH DEXTROSE [Suspect]
     Active Substance: CALCIUM CHLORIDE\DEXTROSE\MAGNESIUM CHLORIDE\SODIUM CHLORIDE\SODIUM LACTATE
     Indication: Peritoneal dialysis
     Dosage: 6L, 1 BAG PER DAY
     Route: 033
     Dates: start: 20200914
  2. DIANEAL LOW CALCIUM WITH DEXTROSE [Suspect]
     Active Substance: CALCIUM CHLORIDE\DEXTROSE\MAGNESIUM CHLORIDE\SODIUM CHLORIDE\SODIUM LACTATE
     Indication: Peritoneal dialysis
     Dosage: 6L 1 BAG PER DAY VIA APD
     Route: 033
     Dates: start: 20220301
  3. DIANEAL LOW CALCIUM WITH DEXTROSE [Suspect]
     Active Substance: CALCIUM CHLORIDE\DEXTROSE\MAGNESIUM CHLORIDE\SODIUM CHLORIDE\SODIUM LACTATE
     Indication: Peritoneal dialysis
     Dosage: 6L, 1 BAG PER DAY
     Route: 033
     Dates: start: 20200914
  4. DIANEAL LOW CALCIUM WITH DEXTROSE [Suspect]
     Active Substance: CALCIUM CHLORIDE\DEXTROSE\MAGNESIUM CHLORIDE\SODIUM CHLORIDE\SODIUM LACTATE
     Indication: Peritoneal dialysis
     Dosage: 6L 1 BAG PER DAY VIA APD
     Route: 065
     Dates: start: 20220301
  5. NIFEDIPINE [Concomitant]
     Active Substance: NIFEDIPINE
     Indication: Product used for unknown indication
     Dosage: 30 MG EVERY 8 HOURS
     Route: 048
  6. FUROSEMIDE [Concomitant]
     Active Substance: FUROSEMIDE
     Indication: Product used for unknown indication
     Dosage: 40 MG TWICE A DAY (80 MG)
     Route: 065
  7. CARBONATO DE CALCIO [Concomitant]
     Indication: Product used for unknown indication
     Dosage: 1500 MG (1 WITH EACH MEAL)
     Route: 065
  8. MINOXIDIL [Concomitant]
     Active Substance: MINOXIDIL
     Indication: Product used for unknown indication
     Dosage: 10 MG (5 MG PER DAY)
     Route: 065
  9. Prazosina [Concomitant]
     Indication: Product used for unknown indication
     Dosage: 2 TAB EVERY 12 HOURS
     Route: 065
  10. CARVEDILOL [Concomitant]
     Active Substance: CARVEDILOL
     Indication: Product used for unknown indication
     Dosage: 25 MG EVERY 12 HOURS
     Route: 065
  11. LOSARTAN [Concomitant]
     Active Substance: LOSARTAN
     Indication: Product used for unknown indication
     Dosage: 50 MG EVERY 12 HOURS
     Route: 065
  12. LINAGLIPTIN [Concomitant]
     Active Substance: LINAGLIPTIN
     Indication: Product used for unknown indication
     Dosage: 1 TABLET OF 5 MG PER DAY
     Route: 065
  13. INSULIN GLULISINE [Concomitant]
     Active Substance: INSULIN GLULISINE
     Indication: Product used for unknown indication
     Dosage: 100 IU PER ML PER 3ML (4 IU PRE-LUNCH AND 6 IU PRE DINNER)
     Route: 065
  14. INSULIN DEGLUDEC [Concomitant]
     Active Substance: INSULIN DEGLUDEC
     Indication: Product used for unknown indication
     Dosage: 100 IU PER ML PER 3ML (20 IU 9PM)
     Route: 058

REACTIONS (1)
  - Arteriovenous fistula [Recovering/Resolving]

NARRATIVE: CASE EVENT DATE: 20220701
